FAERS Safety Report 5597603-8 (Version None)
Quarter: 2008Q1

REPORT INFORMATION
  Report Type: 
  Country: None (occurrence: None)
  Receive Date: 20080121
  Receipt Date: 20080114
  Transmission Date: 20080703
  Serious: Yes (Hospitalization)
  Sender: FDA-Public Use
  Company Number: B0504055A

PATIENT
  Age: 77 Year
  Sex: Male

DRUGS (10)
  1. CIBLOR [Suspect]
     Indication: BRONCHIAL DISORDER
     Route: 048
     Dates: start: 20070502, end: 20070503
  2. BISOPROLOL FUMARATE [Suspect]
     Indication: ARRHYTHMIA
     Dosage: 5MG PER DAY
     Route: 048
     Dates: end: 20070505
  3. CORTANCYL [Concomitant]
     Indication: BRONCHIAL DISORDER
     Dosage: 60MG PER DAY
     Dates: start: 20070502, end: 20070503
  4. DERINOX [Concomitant]
     Indication: BRONCHIAL DISORDER
     Route: 045
     Dates: start: 20070502, end: 20070503
  5. POLERY [Concomitant]
     Indication: BRONCHIAL DISORDER
     Dosage: 2SP THREE TIMES PER DAY
     Dates: start: 20070502, end: 20070503
  6. BETNEVAL [Concomitant]
     Dosage: 1APP TWICE PER DAY
     Route: 061
     Dates: start: 20070502, end: 20070503
  7. LERCAN [Concomitant]
  8. PRAVASTATIN [Concomitant]
  9. AMIODARONE [Concomitant]
     Dosage: 200MG PER DAY
  10. PLAVIX [Concomitant]

REACTIONS (3)
  - CUTANEOUS VASCULITIS [None]
  - LUNG DISORDER [None]
  - PYREXIA [None]
